FAERS Safety Report 9560400 (Version 1)
Quarter: 2013Q3

REPORT INFORMATION
  Report Type: Spontaneous
  Country: US (occurrence: None)
  Receive Date: 20130906
  Receipt Date: 20130906
  Transmission Date: 20140515
  Serious: No
  Sender: FDA-Public Use
  Company Number: 163-POMAL-13060240

PATIENT
  Age: 55 Year
  Sex: Male
  Weight: 108.86 kg

DRUGS (12)
  1. POMALYST [Suspect]
     Indication: PLASMA CELL MYELOMA
     Dosage: 1 IN 1 D
     Dates: start: 201303
  2. XANAX (ALPRAZOLAM) [Concomitant]
  3. SINEQUAN (DOXEPIN HYDROCHLORIDE) [Concomitant]
  4. DEXAMETHASONE (DEXAMETHASONE) [Concomitant]
  5. PROVENTIL INHALER (SALBUTAMOL) [Concomitant]
  6. METFORMIN HCL (METFORMIN HYDROCHLORIDE) [Concomitant]
  7. GLYBURIDE (GLIBENCLAMIDE) [Concomitant]
  8. NEXIUM (ESOMEPRAZOLE) [Concomitant]
  9. VITAMINS [Concomitant]
  10. ADULT LOW DOSE ASPIRIN (ACETYLSALICYLIC ACID) [Concomitant]
  11. CLARITIN (LORATADINE) [Concomitant]
  12. DIOVAN (VALSARTAN) [Concomitant]

REACTIONS (1)
  - Blood glucose increased [None]
